FAERS Safety Report 21512636 (Version 1)
Quarter: 2022Q4

REPORT INFORMATION
  Report Type: Spontaneous
  Country: US (occurrence: US)
  Receive Date: 20221027
  Receipt Date: 20221027
  Transmission Date: 20230113
  Serious: Yes (Other)
  Sender: FDA-Public Use
  Company Number: US-SUN PHARMACEUTICAL INDUSTRIES LTD-2022R1-360567

PATIENT
  Age: 75 Year
  Sex: Male

DRUGS (2)
  1. METHIMAZOLE [Suspect]
     Active Substance: METHIMAZOLE
     Indication: Hyperthyroidism
     Dosage: UNK
     Route: 065
  2. METHIMAZOLE [Suspect]
     Active Substance: METHIMAZOLE
     Dosage: DOSE TITRATION
     Route: 065

REACTIONS (4)
  - Therapy non-responder [Unknown]
  - Condition aggravated [Unknown]
  - Dyspnoea exertional [Recovering/Resolving]
  - Organising pneumonia [Recovering/Resolving]
